FAERS Safety Report 14950482 (Version 2)
Quarter: 2018Q2

REPORT INFORMATION
  Report Type: Spontaneous
  Country: US (occurrence: US)
  Receive Date: 20180530
  Receipt Date: 20180610
  Transmission Date: 20180711
  Serious: Yes (Hospitalization)
  Sender: FDA-Public Use
  Company Number: US-HORIZON-VIM-0945-2018

PATIENT
  Age: 50 Year
  Sex: Female

DRUGS (1)
  1. VIMOVO [Suspect]
     Active Substance: ESOMEPRAZOLE MAGNESIUM\NAPROXEN
     Indication: BACK PAIN
     Dosage: 1 TABLET BID BEFOR MEAL
     Dates: start: 201802, end: 20180513

REACTIONS (4)
  - Off label use [Unknown]
  - Diarrhoea [Recovered/Resolved]
  - Dyspnoea [Recovered/Resolved]
  - Abdominal pain upper [Recovered/Resolved]

NARRATIVE: CASE EVENT DATE: 201802
